FAERS Safety Report 15286517 (Version 1)
Quarter: 2018Q3

REPORT INFORMATION
  Report Type: Spontaneous
  Country: GB (occurrence: GB)
  Receive Date: 20180816
  Receipt Date: 20180816
  Transmission Date: 20181010
  Serious: Yes (Other)
  Sender: FDA-Public Use
  Company Number: GB-BIOGEN-2018BI00619911

PATIENT

DRUGS (1)
  1. AVONEX [Suspect]
     Active Substance: INTERFERON BETA-1A
     Indication: PRODUCT USED FOR UNKNOWN INDICATION
     Dosage: ON AVONEX FOR 3 MONTHS
     Route: 065

REACTIONS (5)
  - Mouth ulceration [Unknown]
  - Lip swelling [Unknown]
  - Feeding disorder [Unknown]
  - Tongue blistering [Unknown]
  - Wound haemorrhage [Unknown]
